FAERS Safety Report 10577339 (Version 2)
Quarter: 2014Q4

REPORT INFORMATION
  Report Type: Report from Study
  Country: US (occurrence: US)
  Receive Date: 20141111
  Receipt Date: 20141111
  Transmission Date: 20150529
  Serious: Yes (Hospitalization, Other)
  Sender: FDA-Public Use
  Company Number: US-BAYER-2014-131528

PATIENT
  Age: 76 Year
  Sex: Male

DRUGS (1)
  1. STIVARGA [Suspect]
     Active Substance: REGORAFENIB
     Indication: RECTAL CANCER
     Dosage: DOSE REGIMEN: 4 X 40
     Route: 048
     Dates: start: 20140808, end: 20140820

REACTIONS (5)
  - Ammonia increased [None]
  - Blood count abnormal [None]
  - Rectal cancer [None]
  - Hepatic encephalopathy [None]
  - Mental status changes [None]

NARRATIVE: CASE EVENT DATE: 201408
